FAERS Safety Report 19705239 (Version 6)
Quarter: 2022Q3

REPORT INFORMATION
  Report Type: Report from Study
  Country: US (occurrence: US)
  Receive Date: 20210816
  Receipt Date: 20220913
  Transmission Date: 20221026
  Serious: Yes (Other)
  Sender: FDA-Public Use
  Company Number: US-NOVARTISTESTPH-NVSC2021US177701

PATIENT
  Sex: Female

DRUGS (1)
  1. KISQALI [Suspect]
     Active Substance: RIBOCICLIB
     Indication: Product used for unknown indication
     Dosage: UNK
     Route: 065

REACTIONS (12)
  - Metastatic neoplasm [Unknown]
  - Ill-defined disorder [Unknown]
  - Illness [Unknown]
  - Gait disturbance [Unknown]
  - Speech disorder [Unknown]
  - Alopecia [Unknown]
  - Rash macular [Unknown]
  - Asthenia [Unknown]
  - Dry skin [Unknown]
  - Rash erythematous [Unknown]
  - Rash [Unknown]
  - Product dose omission issue [Unknown]
